FAERS Safety Report 12473667 (Version 2)
Quarter: 2016Q3

REPORT INFORMATION
  Report Type: Spontaneous
  Country: US (occurrence: US)
  Receive Date: 20160616
  Receipt Date: 20160729
  Transmission Date: 20161109
  Serious: Yes (Hospitalization)
  Sender: FDA-Public Use
  Company Number: US-ACTELION-A-NJ2016-137701

PATIENT
  Age: 22 Month
  Sex: Male

DRUGS (6)
  1. KEPPRA [Concomitant]
     Active Substance: LEVETIRACETAM
  2. BACLOFEN. [Concomitant]
     Active Substance: BACLOFEN
  3. TRACLEER [Suspect]
     Active Substance: BOSENTAN
     Indication: PULMONARY ARTERIAL HYPERTENSION
     Dosage: 13.5 MG, BID
     Route: 048
     Dates: start: 20160322
  4. CLONIDINE. [Concomitant]
     Active Substance: CLONIDINE
  5. REVATIO [Concomitant]
     Active Substance: SILDENAFIL CITRATE
  6. VITAMIN D [Concomitant]
     Active Substance: CHOLECALCIFEROL

REACTIONS (3)
  - Pseudomonas infection [Unknown]
  - Shunt malfunction [Recovered/Resolved]
  - Somnolence [Recovered/Resolved]

NARRATIVE: CASE EVENT DATE: 20160527
